FAERS Safety Report 5639140-8 (Version None)
Quarter: 2008Q1

REPORT INFORMATION
  Report Type: 
  Country: None (occurrence: None)
  Receive Date: 20080226
  Receipt Date: 20070117
  Transmission Date: 20080703
  Serious: No
  Sender: FDA-Public Use
  Company Number: 07H-163-0311829-00

PATIENT
  Age: 62 Year
  Sex: Female

DRUGS (1)
  1. HEPARIN SODIUM [Suspect]
     Indication: DRUG USE FOR UNKNOWN INDICATION
     Dosage: INTRAVENOUS
     Route: 042
     Dates: start: 20070112

REACTIONS (3)
  - BURNING SENSATION [None]
  - CHEST DISCOMFORT [None]
  - FLUSHING [None]
